FAERS Safety Report 4657459-4 (Version None)
Quarter: 2005Q2

REPORT INFORMATION
  Report Type: 
  Country: None (occurrence: None)
  Receive Date: 20050509
  Receipt Date: 20050509
  Transmission Date: 20051028
  Serious: Yes (Life-Threatening, Hospitalization, Other)
  Sender: FDA-Public Use
  Company Number: None

PATIENT
  Age: 46 Year
  Sex: Female
  Weight: 92.9874 kg

DRUGS (1)
  1. SKELAXIN [Suspect]
     Indication: BONE PAIN
     Dosage: 3 TIMES A DAY
     Dates: start: 20040522, end: 20050312

REACTIONS (1)
  - EYE HAEMORRHAGE [None]
